FAERS Safety Report 13884936 (Version 2)
Quarter: 2017Q3

REPORT INFORMATION
  Report Type: Spontaneous
  Country: US (occurrence: US)
  Receive Date: 20170821
  Receipt Date: 20170825
  Transmission Date: 20171127
  Serious: Yes (Hospitalization, Other)
  Sender: FDA-Public Use
  Company Number: US-PFIZER INC-2017351348

PATIENT
  Age: 32 Year
  Sex: Male

DRUGS (4)
  1. TESTOSTERONE CIPIONATE [Suspect]
     Active Substance: TESTOSTERONE
     Indication: SKIN COSMETIC PROCEDURE
     Dosage: UNK, CYCLIC (APPROXIMATELY 6 WEEKS BEFORE ADMISSION)
     Route: 030
  2. NANDROLONE [Suspect]
     Active Substance: NANDROLONE
     Indication: SKIN COSMETIC PROCEDURE
     Dosage: UNK, CYCLIC (APPROXIMATELY 6 WEEKS BEFORE ADMISSION)
     Route: 030
  3. PHENIBUT [Suspect]
     Active Substance: DIETARY SUPPLEMENT
     Indication: INSOMNIA
     Dosage: 8 TO 10 G/D, DAILY
  4. PHENIBUT [Suspect]
     Active Substance: DIETARY SUPPLEMENT
     Dosage: 16 G, DAILY

REACTIONS (2)
  - Intentional product misuse [Unknown]
  - Drug withdrawal syndrome [Recovering/Resolving]
